FAERS Safety Report 9668409 (Version 2)
Quarter: 2013Q4

REPORT INFORMATION
  Report Type: Spontaneous
  Country: RU (occurrence: RU)
  Receive Date: 20131104
  Receipt Date: 20131114
  Transmission Date: 20140711
  Serious: Yes (Other)
  Sender: FDA-Public Use
  Company Number: RU-ROCHE-1298581

PATIENT
  Age: 29 Year
  Sex: Female

DRUGS (1)
  1. MABTHERA [Suspect]
     Indication: SYSTEMIC LUPUS ERYTHEMATOSUS
     Dosage: 2 COURSES WITH 6 MONTH-BREAK
     Route: 042

REACTIONS (2)
  - Proteinuria [Recovering/Resolving]
  - Off label use [Unknown]
